FAERS Safety Report 13662977 (Version 2)
Quarter: 2017Q2

REPORT INFORMATION
  Report Type: Report from Study
  Country: CA (occurrence: CA)
  Receive Date: 20170619
  Receipt Date: 20170620
  Transmission Date: 20170830
  Serious: Yes (Other)
  Sender: FDA-Public Use
  Company Number: CA-TEVA-721318ACC

PATIENT
  Sex: Female

DRUGS (5)
  1. CARBAMAZEPINE. [Concomitant]
     Active Substance: CARBAMAZEPINE
     Dosage: 100 MILLIGRAM DAILY;
  2. VITAMIN D [Concomitant]
     Active Substance: CHOLECALCIFEROL
  3. COPAXONE [Suspect]
     Active Substance: GLATIRAMER ACETATE
     Indication: MULTIPLE SCLEROSIS
     Dosage: 20 MILLIGRAM/MILLILITERS DAILY;
     Route: 058
     Dates: start: 20160603
  4. MINOCYCLINE [Concomitant]
     Active Substance: MINOCYCLINE\MINOCYCLINE HYDROCHLORIDE
     Indication: ACNE
     Dosage: 100 MILLIGRAM DAILY;
  5. BETADERM [Concomitant]
     Active Substance: BETAMETHASONE VALERATE
     Indication: PSORIASIS
     Dosage: SCALP LOTION; AS NEEDED

REACTIONS (4)
  - Systemic lupus erythematosus [Unknown]
  - Blood urine present [Unknown]
  - Protein urine [Unknown]
  - Cholelithiasis [Unknown]
